FAERS Safety Report 24582549 (Version 1)
Quarter: 2024Q4

REPORT INFORMATION
  Report Type: Report from Study
  Country: US (occurrence: US)
  Receive Date: 20241106
  Receipt Date: 20241106
  Transmission Date: 20250115
  Serious: Yes (Hospitalization, Other)
  Sender: EXELIXIS
  Company Number: US-EXELIXIS-EXL-2024-001741

PATIENT
  Sex: Male
  Weight: 97.506 kg

DRUGS (18)
  1. CABOMETYX [Suspect]
     Active Substance: CABOZANTINIB S-MALATE
     Indication: Renal cell carcinoma
     Dosage: 20 MG, QD
     Route: 048
     Dates: start: 202402
  2. OPDIVO [Concomitant]
     Active Substance: NIVOLUMAB
  3. CLONAZEPAM [Concomitant]
     Active Substance: CLONAZEPAM
  4. METFORMIN [Concomitant]
     Active Substance: METFORMIN HYDROCHLORIDE
  5. FUROSEMIDE [Concomitant]
     Active Substance: FUROSEMIDE
  6. PROZAC [Concomitant]
     Active Substance: FLUOXETINE HYDROCHLORIDE
  7. CARVEDILOL [Concomitant]
     Active Substance: CARVEDILOL
  8. AMLODIPINE BESYLATE [Concomitant]
     Active Substance: AMLODIPINE BESYLATE
  9. SPIRONOLACTONE [Concomitant]
     Active Substance: SPIRONOLACTONE
  10. TRIAMCINOLONE ACETONIDE [Concomitant]
     Active Substance: TRIAMCINOLONE ACETONIDE
  11. GABAPENTIN [Concomitant]
     Active Substance: GABAPENTIN
  12. AMBIEN [Concomitant]
     Active Substance: ZOLPIDEM TARTRATE
  13. LEVOTHYROXINE SODIUM [Concomitant]
     Active Substance: LEVOTHYROXINE SODIUM
  14. JARDIANCE [Concomitant]
     Active Substance: EMPAGLIFLOZIN
  15. ISOSORBIDE MONONITRATE [Concomitant]
     Active Substance: ISOSORBIDE MONONITRATE
  16. LIPITOR [Concomitant]
     Active Substance: ATORVASTATIN CALCIUM
  17. HYDROCODONE BITARTRATE AND ACETAMINOPHEN [Concomitant]
     Active Substance: ACETAMINOPHEN\HYDROCODONE BITARTRATE
  18. PROTONIX [Concomitant]
     Active Substance: PANTOPRAZOLE SODIUM

REACTIONS (5)
  - Neuropathy peripheral [Recovering/Resolving]
  - Cardiac failure congestive [Recovering/Resolving]
  - Angina pectoris [Recovering/Resolving]
  - Cancer surgery [Recovering/Resolving]
  - Rash [Recovering/Resolving]
